FAERS Safety Report 8525590-9 (Version None)
Quarter: 2012Q3

REPORT INFORMATION
  Report Type: 
  Country: None (occurrence: None)
  Receive Date: 20120720
  Receipt Date: 20120712
  Transmission Date: 20120928
  Serious: Yes (Hospitalization)
  Sender: FDA-Public Use
  Company Number: CH-FRI-1000037260

PATIENT
  Sex: Female

DRUGS (13)
  1. PLAVIX [Suspect]
     Dosage: 75 MG
     Route: 048
  2. NEXIUM [Concomitant]
     Dosage: 40 MG
     Route: 048
     Dates: end: 20120501
  3. PLAVIX [Suspect]
     Indication: ARTERIOSCLEROSIS CORONARY ARTERY
     Dosage: 75 MG
     Route: 048
  4. METOPROLOL TARTRATE [Concomitant]
     Dosage: 50 MG
     Route: 048
  5. ESCITALOPRAM [Suspect]
     Indication: DEPRESSION
     Dosage: 10 MG
     Route: 048
  6. ASPIRIN [Suspect]
     Dosage: 100 MG
     Route: 048
  7. SEROQUEL [Concomitant]
     Dosage: 25 MG
     Route: 048
  8. TORSEMIDE [Suspect]
     Dosage: 10 MG
     Route: 048
     Dates: end: 20120501
  9. MARCUMAR [Suspect]
     Indication: ARTERIOSCLEROSIS CORONARY ARTERY
     Route: 048
     Dates: end: 20120501
  10. PRAVASTATIN [Concomitant]
     Dosage: 20 MG
     Route: 048
  11. ZESTRIL [Concomitant]
     Dosage: 20 MG
     Route: 048
  12. CALCIMAGON D3 [Concomitant]
     Dosage: 2 DF
     Route: 048
  13. ASPIRIN [Suspect]
     Indication: ARTERIOSCLEROSIS CORONARY ARTERY
     Dosage: 100 MG
     Route: 048

REACTIONS (3)
  - GASTROINTESTINAL HAEMORRHAGE [None]
  - HAEMATEMESIS [None]
  - INTERNATIONAL NORMALISED RATIO INCREASED [None]
